FAERS Safety Report 6161395-4 (Version None)
Quarter: 2009Q2

REPORT INFORMATION
  Report Type: 
  Country: None (occurrence: None)
  Receive Date: 20090421
  Receipt Date: 20090413
  Transmission Date: 20091009
  Serious: Yes (Death)
  Sender: FDA-Public Use
  Company Number: US-TYCO HEALTHCARE/MALLINCKRODT-T200900875

PATIENT
  Age: 16 Year

DRUGS (1)
  1. METHADOSE [Suspect]
     Dosage: UNK
     Dates: start: 20090301, end: 20090301

REACTIONS (2)
  - ACCIDENTAL OVERDOSE [None]
  - DRUG DIVERSION [None]
